FAERS Safety Report 18877848 (Version 1)
Quarter: 2021Q1

REPORT INFORMATION
  Report Type: Report from Study
  Country: GB (occurrence: GB)
  Receive Date: 20210211
  Receipt Date: 20210211
  Transmission Date: 20210420
  Serious: Yes (Hospitalization, Other)
  Sender: FDA-Public Use
  Company Number: GB-ACCORD-216846

PATIENT
  Age: 70 Year
  Sex: Female

DRUGS (2)
  1. IMRALDI [Suspect]
     Active Substance: ADALIMUMAB
     Indication: RHEUMATOID ARTHRITIS
     Route: 058
     Dates: start: 20190604
  2. METHOTREXATE. [Suspect]
     Active Substance: METHOTREXATE
     Indication: PRODUCT USED FOR UNKNOWN INDICATION
     Route: 065

REACTIONS (16)
  - Asthenia [Unknown]
  - Illness [Unknown]
  - Decreased appetite [Unknown]
  - Fatigue [Unknown]
  - Musculoskeletal stiffness [Unknown]
  - Cholelithiasis [Unknown]
  - Pneumonia [Unknown]
  - Gait disturbance [Unknown]
  - Dehydration [Unknown]
  - Cystitis [Unknown]
  - Walking aid user [Unknown]
  - Pain in extremity [Unknown]
  - Pain [Unknown]
  - Arthralgia [Unknown]
  - Loss of personal independence in daily activities [Unknown]
  - Sleep disorder [Unknown]
